FAERS Safety Report 5158704-1 (Version None)
Quarter: 2006Q4

REPORT INFORMATION
  Report Type: 
  Country: None (occurrence: None)
  Receive Date: 20061128
  Receipt Date: 20061110
  Transmission Date: 20070319
  Serious: Yes (Hospitalization)
  Sender: FDA-Public Use
  Company Number: BPC-ZN-06-513

PATIENT
  Age: 64 Year
  Sex: Female
  Weight: 43.2 kg

DRUGS (1)
  1. ZYBAN [Suspect]
     Indication: EX-SMOKER
     Dosage: 150MG TWICE PER DAY
     Route: 048
     Dates: start: 20061021

REACTIONS (4)
  - BALANCE DISORDER [None]
  - BLOOD SODIUM DECREASED [None]
  - DRY MOUTH [None]
  - MALNUTRITION [None]
